FAERS Safety Report 12273557 (Version 1)
Quarter: 2016Q2

REPORT INFORMATION
  Report Type: Spontaneous
  Country: IT (occurrence: IT)
  Receive Date: 20160415
  Receipt Date: 20160415
  Transmission Date: 20160815
  Serious: Yes (Other)
  Sender: FDA-Public Use
  Company Number: IT-TEVA-651277ACC

PATIENT
  Age: 41 Year
  Sex: Male

DRUGS (2)
  1. OLANZAPINA TEVA - 5 MG COMPRESSE RIVESTITE CON FILM - TEVA B.V. [Suspect]
     Active Substance: OLANZAPINE
     Indication: DEPRESSION
     Dosage: 5 MILLIGRAM DAILY;
     Route: 048
     Dates: start: 20160316, end: 20160324
  2. HALDOL DECANOAS - 50 MG/ML SOLUZIONE INIETTABILE [Concomitant]
     Indication: PRODUCT USED FOR UNKNOWN INDICATION
     Dosage: 50 MG
     Route: 030

REACTIONS (2)
  - Erythema [Recovered/Resolved]
  - Glossitis [Recovered/Resolved]

NARRATIVE: CASE EVENT DATE: 20160324
